FAERS Safety Report 8346477-0 (Version None)
Quarter: 2012Q2

REPORT INFORMATION
  Report Type: 
  Country: None (occurrence: None)
  Receive Date: 20120507
  Receipt Date: 20120507
  Transmission Date: 20120825
  Serious: Yes (Life-Threatening, Hospitalization)
  Sender: FDA-Public Use
  Company Number: None

PATIENT
  Age: 62 Year
  Sex: Male
  Weight: 120.2032 kg

DRUGS (1)
  1. WELLBUTRIN [Suspect]
     Indication: DEEP VEIN THROMBOSIS
     Dosage: 300 MG PO QD
     Route: 048
     Dates: start: 20111120, end: 20120120

REACTIONS (1)
  - DEEP VEIN THROMBOSIS [None]
